FAERS Safety Report 23349016 (Version 1)
Quarter: 2023Q4

REPORT INFORMATION
  Report Type: Other
  Country: US (occurrence: None)
  Receive Date: 20231229
  Receipt Date: 20231229
  Transmission Date: 20240109
  Serious: No
  Sender: FDA-Public Use
  Company Number: US-ROCHE-3111443

PATIENT
  Age: 58 Year
  Sex: Female

DRUGS (1)
  1. OCREVUS [Suspect]
     Active Substance: OCRELIZUMAB
     Indication: Relapsing-remitting multiple sclerosis
     Dosage: DATE OF TREATMENT: 15/NOV/2023
     Route: 042

REACTIONS (9)
  - Sinusitis [Unknown]
  - Fatigue [Unknown]
  - Dyspnoea [Unknown]
  - COVID-19 [Recovering/Resolving]
  - Tendon injury [Not Recovered/Not Resolved]
  - Lower limb fracture [Recovered/Resolved]
  - Paranasal sinus hypersecretion [Recovering/Resolving]
  - Hallucination [Not Recovered/Not Resolved]
  - Drug hypersensitivity [Not Recovered/Not Resolved]

NARRATIVE: CASE EVENT DATE: 20190101
